FAERS Safety Report 16021883 (Version 1)
Quarter: 2019Q2

REPORT INFORMATION
  Report Type: Spontaneous
  Country: US (occurrence: US)
  Receive Date: 20190301
  Receipt Date: 20190301
  Transmission Date: 20190711
  Serious: Yes (Other)
  Sender: FDA-Public Use
  Company Number: None

PATIENT
  Age: 41 Year
  Sex: Female
  Weight: 51.75 kg

DRUGS (1)
  1. CYMBALTA [Suspect]
     Active Substance: DULOXETINE HYDROCHLORIDE
     Indication: FIBROMYALGIA
     Route: 048

REACTIONS (7)
  - Blepharospasm [None]
  - Gait disturbance [None]
  - Headache [None]
  - Insomnia [None]
  - Dizziness [None]
  - Balance disorder [None]
  - Nausea [None]

NARRATIVE: CASE EVENT DATE: 20180414
